FAERS Safety Report 10160167 (Version 2)
Quarter: 2014Q2

REPORT INFORMATION
  Report Type: Spontaneous
  Country: DE (occurrence: DE)
  Receive Date: 20140508
  Receipt Date: 20140508
  Transmission Date: 20141212
  Serious: Yes (Other)
  Sender: FDA-Public Use
  Company Number: DE-ASTELLAS-2014EU002392

PATIENT
  Age: 72 Year
  Sex: Female
  Weight: 55 kg

DRUGS (4)
  1. VESIKUR [Suspect]
     Indication: BLADDER DISORDER
     Dosage: 1 SINGLE DOSE, ONCE
     Route: 065
     Dates: end: 201312
  2. VESIKUR [Suspect]
     Indication: BLADDER DISORDER
     Dosage: 1 SINGLE DOSE, ONCE
     Route: 065
     Dates: start: 201312, end: 20140315
  3. ASS 100 [Concomitant]
     Indication: PRODUCT USED FOR UNKNOWN INDICATION
     Dosage: 1 SINGLE DOSE, ONCE
     Route: 065
  4. TAMOXIFEN [Concomitant]
     Indication: PRODUCT USED FOR UNKNOWN INDICATION
     Dosage: 1 SINGLE DOSE, ONCE
     Route: 065
     Dates: start: 201312

REACTIONS (4)
  - Oropharyngeal pain [Recovered/Resolved]
  - Dry throat [Recovered/Resolved]
  - Constipation [Recovered/Resolved]
  - Drug ineffective [Not Recovered/Not Resolved]
